FAERS Safety Report 21878568 (Version 1)
Quarter: 2023Q1

REPORT INFORMATION
  Report Type: Spontaneous
  Country: JP (occurrence: JP)
  Receive Date: 20230118
  Receipt Date: 20230118
  Transmission Date: 20230418
  Serious: Yes (Other)
  Sender: FDA-Public Use
  Company Number: JP-PFIZER INC-PV202300006657

PATIENT
  Age: 2 Month
  Sex: Female

DRUGS (1)
  1. PENICILLIN G BENZATHINE [Suspect]
     Active Substance: PENICILLIN G BENZATHINE
     Indication: Congenital syphilis
     Dosage: UNK

REACTIONS (2)
  - Jarisch-Herxheimer reaction [Recovering/Resolving]
  - Metabolic acidosis [Recovering/Resolving]
